FAERS Safety Report 12924863 (Version 1)
Quarter: 2016Q4

REPORT INFORMATION
  Report Type: Report from Study
  Country: US (occurrence: US)
  Receive Date: 20161108
  Receipt Date: 20161108
  Transmission Date: 20170207
  Serious: Yes (Hospitalization)
  Sender: FDA-Public Use
  Company Number: US-ACTELION-A-NJ2016-145191

PATIENT
  Age: 63 Year
  Sex: Female

DRUGS (1)
  1. VELETRI [Suspect]
     Active Substance: EPOPROSTENOL
     Indication: PULMONARY HYPERTENSION
     Dosage: 50 NG/KG, PER MIN
     Route: 042
     Dates: start: 20150601

REACTIONS (1)
  - Transplant [Unknown]

NARRATIVE: CASE EVENT DATE: 20161020
